FAERS Safety Report 25458174 (Version 1)
Quarter: 2025Q2

REPORT INFORMATION
  Report Type: Spontaneous
  Country: US (occurrence: None)
  Receive Date: 20250620
  Receipt Date: 20250620
  Transmission Date: 20250716
  Serious: No
  Sender: EMMAUS LIFE SCIENCES
  Company Number: US-Emmaus Medical, Inc.-EMM202407-000360

PATIENT
  Age: 9 Year
  Sex: Female

DRUGS (2)
  1. ENDARI [Suspect]
     Active Substance: GLUTAMINE
     Indication: Thalassaemia sickle cell
     Route: 048
     Dates: start: 202405
  2. MIRALAX [Concomitant]
     Active Substance: POLYETHYLENE GLYCOL 3350
     Indication: Constipation
     Route: 065

REACTIONS (10)
  - Anxiety [Unknown]
  - Dizziness [Unknown]
  - Breast pain [Unknown]
  - Diarrhoea [Unknown]
  - Decreased appetite [Unknown]
  - Dry mouth [Unknown]
  - Constipation [Not Recovered/Not Resolved]
  - Headache [Not Recovered/Not Resolved]
  - Pain in extremity [Unknown]
  - Abdominal pain upper [Unknown]

NARRATIVE: CASE EVENT DATE: 20240101
